FAERS Safety Report 8390583-1 (Version None)
Quarter: 2012Q2

REPORT INFORMATION
  Report Type: 
  Country: None (occurrence: None)
  Receive Date: 20120529
  Receipt Date: 20120516
  Transmission Date: 20120825
  Serious: Yes (Hospitalization)
  Sender: FDA-Public Use
  Company Number: IL-ELI_LILLY_AND_COMPANY-IL201205007409

PATIENT
  Sex: Female
  Weight: 52 kg

DRUGS (6)
  1. OMEPRAZOLE (PRISOLEC) [Concomitant]
  2. FORTEO [Suspect]
     Indication: OSTEOPOROSIS
     Dosage: 20 UG, QD
     Route: 058
  3. PREDNISONE TAB [Concomitant]
  4. PK-MERZ [Concomitant]
  5. LEVOTHYROXINE SODIUM [Concomitant]
  6. LEVOLAC [Concomitant]

REACTIONS (1)
  - PELVIC FRACTURE [None]
